FAERS Safety Report 5747621-1 (Version None)
Quarter: 2008Q2

REPORT INFORMATION
  Report Type: 
  Country: None (occurrence: None)
  Receive Date: 20080523
  Receipt Date: 20080516
  Transmission Date: 20081010
  Serious: Yes (Other)
  Sender: FDA-Public Use
  Company Number: US-ROCHE-555075

PATIENT
  Sex: Female

DRUGS (2)
  1. ISOTRETINOIN [Suspect]
     Indication: DRUG USE FOR UNKNOWN INDICATION
     Dosage: THE PATIENT WAS DISPENSED ISOTRETINOIN CAPSULES 40 MG AND 20 MG ON 11 JANUARY 2008.
     Route: 065
     Dates: start: 20080111, end: 20080210
  2. BIRTH CONTROL PILLS [Concomitant]

REACTIONS (6)
  - ABORTION SPONTANEOUS [None]
  - DRUG EXPOSURE DURING PREGNANCY [None]
  - MATERNAL DRUGS AFFECTING FOETUS [None]
  - NO ADVERSE EVENT [None]
  - PREGNANCY ON ORAL CONTRACEPTIVE [None]
  - TREATMENT NONCOMPLIANCE [None]
